FAERS Safety Report 9636553 (Version 1)
Quarter: 2013Q4

REPORT INFORMATION
  Report Type: Spontaneous
  Country: US (occurrence: US)
  Receive Date: 20131021
  Receipt Date: 20131021
  Transmission Date: 20140711
  Serious: Yes (Death)
  Sender: FDA-Public Use
  Company Number: PHHY2013US113730

PATIENT
  Age: 36 Year
  Sex: Male

DRUGS (3)
  1. TRAMADOL [Suspect]
  2. AMFETAMINE [Suspect]
  3. FORMALDEHYDE [Suspect]

REACTIONS (5)
  - Toxicity to various agents [Fatal]
  - Hyperthermia [Fatal]
  - Asphyxia [Fatal]
  - Completed suicide [Fatal]
  - Intentional overdose [Fatal]
